FAERS Safety Report 8166474 (Version 5)
Quarter: 2013Q2

REPORT INFORMATION
  Report Type: Spontaneous
  Country: DK (occurrence: DK)
  Receive Date: 20111003
  Receipt Date: 20130520
  Transmission Date: 20140414
  Serious: Yes (Life-Threatening, Disabling, Other)
  Sender: FDA-Public Use
  Company Number: DK-ASTRAZENECA-2011SE57179

PATIENT
  Age: 36 Year
  Sex: Male
  Weight: 80 kg

DRUGS (13)
  1. SEROQUEL PROLONG [Suspect]
     Indication: ANXIETY
     Route: 048
     Dates: start: 20090130, end: 20110523
  2. SEROQUEL PROLONG [Suspect]
     Indication: ANXIETY
     Route: 048
  3. DELEPSINE RETARD [Suspect]
     Indication: BIPOLAR DISORDER
     Route: 048
     Dates: start: 20090320, end: 20110427
  4. LYRICA [Suspect]
     Indication: ANXIETY
     Route: 048
     Dates: start: 20091210, end: 20110826
  5. PANTOPRAZOLE [Concomitant]
  6. RAMIPRIL [Concomitant]
     Indication: RENAL HYPERTENSION
     Route: 048
     Dates: start: 2005
  7. CIPRALEX [Concomitant]
  8. LITAREX [Concomitant]
  9. NICORETTE [Concomitant]
  10. CETIRIZINE [Concomitant]
  11. ALMINOX ^DAK^ [Concomitant]
  12. ATENODAN [Concomitant]
  13. OTHER DRUG COMINATIONS [Concomitant]
     Indication: DEPRESSION

REACTIONS (4)
  - Overdose [Unknown]
  - Suicide attempt [Unknown]
  - Atonic urinary bladder [Not Recovered/Not Resolved]
  - Renal hypertension [Unknown]
